FAERS Safety Report 21778972 (Version 2)
Quarter: 2023Q1

REPORT INFORMATION
  Report Type: Report from Study
  Country: FR (occurrence: FR)
  Receive Date: 20221226
  Receipt Date: 20230104
  Transmission Date: 20230417
  Serious: Yes (Other)
  Sender: FDA-Public Use
  Company Number: FR-002147023-NVSC2022FR293348

PATIENT
  Sex: Male
  Weight: 98 kg

DRUGS (1)
  1. PLUVICTO [Suspect]
     Active Substance: LUTETIUM LU-177 VIPIVOTIDE TETRAXETAN
     Indication: Prostate cancer
     Dosage: UNK (ONCE)
     Route: 065
     Dates: start: 20221117

REACTIONS (2)
  - Acute kidney injury [Unknown]
  - Inflammation [Unknown]
